FAERS Safety Report 16249683 (Version 3)
Quarter: 2024Q4

REPORT INFORMATION
  Report Type: Other
  Country: GR (occurrence: GR)
  Receive Date: 20190429
  Receipt Date: 20241101
  Transmission Date: 20250115
  Serious: Yes (Other)
  Sender: NOVA LABORATORIES
  Company Number: GR-RARE DISEASE THERAPEUTICS, INC.-2066383

PATIENT
  Age: 11 Year
  Sex: Female

DRUGS (7)
  1. PURIXAN [Suspect]
     Active Substance: MERCAPTOPURINE
     Indication: Non-Hodgkin^s lymphoma
  2. VINCRISTINE SULFATE [Suspect]
     Active Substance: VINCRISTINE SULFATE
  3. DOXORUBICIN HYDROCHLORIDE [Suspect]
     Active Substance: DOXORUBICIN HYDROCHLORIDE
  4. ASPARAGINASE [Suspect]
     Active Substance: ASPARAGINASE
  5. CYTARABINE [Suspect]
     Active Substance: CYTARABINE
  6. METHOTREXATE SODIUM [Suspect]
     Active Substance: METHOTREXATE SODIUM
  7. CYCLOPHOSPHAMIDE [Suspect]
     Active Substance: CYCLOPHOSPHAMIDE

REACTIONS (2)
  - Papillary thyroid cancer [Unknown]
  - Off label use [Unknown]
